FAERS Safety Report 23761230 (Version 1)
Quarter: 2024Q2

REPORT INFORMATION
  Report Type: Report from Study
  Country: NZ (occurrence: NZ)
  Receive Date: 20240419
  Receipt Date: 20240419
  Transmission Date: 20240716
  Serious: Yes (Hospitalization, Other)
  Sender: FDA-Public Use
  Company Number: NZ-JNJFOC-20240427405

PATIENT
  Age: 72 Year
  Sex: Male

DRUGS (13)
  1. BORTEZOMIB [Suspect]
     Active Substance: BORTEZOMIB
     Indication: Plasma cell myeloma
     Dosage: 1.6 MILLIGRAM
     Route: 065
     Dates: start: 20220316, end: 20220504
  2. DEXAMETHASONE [Suspect]
     Active Substance: DEXAMETHASONE
     Indication: Plasma cell myeloma
     Dosage: 20 MILLIGRAM
     Route: 065
     Dates: start: 20220316, end: 20220504
  3. LENALIDOMIDE [Suspect]
     Active Substance: LENALIDOMIDE
     Indication: Plasma cell myeloma
     Dosage: 10 MILLIGRAM
     Route: 065
     Dates: start: 20220316, end: 20220503
  4. ASPIRIN [Concomitant]
     Active Substance: ASPIRIN
     Indication: Myocardial ischaemia
     Dosage: 100 MILLIGRAM
     Route: 065
     Dates: start: 20101204
  5. ATORVASTATIN [Concomitant]
     Active Substance: ATORVASTATIN
     Indication: Hyperlipidaemia
     Dosage: 10 MILLIGRAM
     Route: 065
  6. CALCIUM\CHOLECALCIFEROL [Concomitant]
     Active Substance: CALCIUM\CHOLECALCIFEROL
     Dosage: 500 MILLIGRAM
     Route: 065
  7. CILAZAPRIL ANHYDROUS [Concomitant]
     Active Substance: CILAZAPRIL ANHYDROUS
     Indication: Hypertension
     Dosage: 0.5 MILLIGRAM
     Route: 065
     Dates: start: 20220506
  8. FENTANYL [Concomitant]
     Active Substance: FENTANYL\FENTANYL CITRATE
     Indication: Plasma cell myeloma
     Dosage: 25 MICROGRAM
     Route: 065
  9. MORPHINE [Concomitant]
     Active Substance: MORPHINE
     Indication: Plasma cell myeloma
     Dosage: 5 MILLIGRAM
     Route: 065
     Dates: start: 20220308
  10. OMEPRAZOLE [Concomitant]
     Active Substance: OMEPRAZOLE
     Route: 065
  11. ACETAMINOPHEN [Concomitant]
     Active Substance: ACETAMINOPHEN
     Indication: Plasma cell myeloma
     Dosage: 4000 MILLIGRAM
     Route: 065
     Dates: start: 20220308
  12. PREDNISONE [Concomitant]
     Active Substance: PREDNISONE
     Indication: Autoimmune nephritis
     Dosage: 5 MILLIGRAM
     Route: 065
     Dates: start: 20220531
  13. PREGABALIN [Concomitant]
     Active Substance: PREGABALIN
     Indication: Neuralgia
     Dosage: 300 MILLIGRAM
     Route: 065
     Dates: start: 20220309

REACTIONS (3)
  - Febrile neutropenia [Recovered/Resolved]
  - Cytomegalovirus enterocolitis [Recovered/Resolved]
  - Delirium [Recovered/Resolved]

NARRATIVE: CASE EVENT DATE: 20220506
